FAERS Safety Report 23346300 (Version 1)
Quarter: 2023Q4

REPORT INFORMATION
  Report Type: Spontaneous
  Country: US (occurrence: None)
  Receive Date: 20231227
  Receipt Date: 20231227
  Transmission Date: 20240109
  Serious: Yes (Death)
  Sender: FDA-Public Use
  Company Number: None

PATIENT
  Age: 8 Month
  Sex: Male

DRUGS (1)
  1. TRACLEER [Suspect]
     Active Substance: BOSENTAN

REACTIONS (4)
  - Pyrexia [None]
  - Hypotension [None]
  - Nervous system disorder [None]
  - Injury [None]

NARRATIVE: CASE EVENT DATE: 20190831
